FAERS Safety Report 21750110 (Version 1)
Quarter: 2022Q4

REPORT INFORMATION
  Report Type: Spontaneous
  Country: US (occurrence: US)
  Receive Date: 20221219
  Receipt Date: 20221219
  Transmission Date: 20230113
  Serious: No
  Sender: FDA-Public Use
  Company Number: US-GBT-015639

PATIENT
  Age: 27 Year
  Sex: Female

DRUGS (3)
  1. OXBRYTA [Suspect]
     Active Substance: VOXELOTOR
     Indication: Sickle cell disease
  2. HYDROXYUREA [Concomitant]
     Active Substance: HYDROXYUREA
  3. ADAKVEO [Concomitant]
     Active Substance: CRIZANLIZUMAB-TMCA

REACTIONS (5)
  - Fatigue [Unknown]
  - Diarrhoea [Unknown]
  - Therapy interrupted [Unknown]
  - Intentional product use issue [Unknown]
  - Nausea [Unknown]
